FAERS Safety Report 15150395 (Version 3)
Quarter: 2018Q3

REPORT INFORMATION
  Report Type: Report from Study
  Country: US (occurrence: US)
  Receive Date: 20180716
  Receipt Date: 20180814
  Transmission Date: 20181010
  Serious: Yes (Other)
  Sender: FDA-Public Use
  Company Number: US-PFIZER INC-2018037158

PATIENT
  Age: 68 Year
  Sex: Female

DRUGS (3)
  1. SUTENT [Suspect]
     Active Substance: SUNITINIB MALATE
     Indication: PANCREATIC NEUROENDOCRINE TUMOUR
     Dosage: 37.5 MG, DAILY
     Route: 048
     Dates: start: 20180119, end: 2018
  2. SUTENT [Suspect]
     Active Substance: SUNITINIB MALATE
     Dosage: 37.5 MG, DAILY
     Route: 048
     Dates: start: 2018, end: 20180404
  3. SUTENT [Suspect]
     Active Substance: SUNITINIB MALATE
     Dosage: 25 MG, DAILY
     Route: 048
     Dates: start: 20180418

REACTIONS (18)
  - Protein urine present [Unknown]
  - Neuropathy peripheral [Unknown]
  - Nausea [Unknown]
  - Rash [Unknown]
  - White blood cell count decreased [Recovering/Resolving]
  - Skin exfoliation [Unknown]
  - Platelet count decreased [Unknown]
  - Diarrhoea [Unknown]
  - Liver function test increased [Unknown]
  - Stomatitis [Unknown]
  - Pain in extremity [Unknown]
  - Oral pain [Unknown]
  - Dry skin [Unknown]
  - Fatigue [Recovering/Resolving]
  - Dysgeusia [Unknown]
  - Hypertension [Recovered/Resolved]
  - Urinary tract infection [Unknown]
  - Palmar-plantar erythrodysaesthesia syndrome [Unknown]

NARRATIVE: CASE EVENT DATE: 2018
